FAERS Safety Report 10167646 (Version 20)
Quarter: 2018Q3

REPORT INFORMATION
  Report Type: Report from Study
  Country: CA (occurrence: CA)
  Receive Date: 20140512
  Receipt Date: 20180713
  Transmission Date: 20181010
  Serious: Yes (Other)
  Sender: FDA-Public Use
  Company Number: PHHY2012CA078099

PATIENT
  Sex: Male

DRUGS (11)
  1. GLEEVEC [Suspect]
     Active Substance: IMATINIB MESYLATE
     Dosage: 400 MG, QD
     Route: 048
     Dates: end: 201407
  2. GLEEVEC [Suspect]
     Active Substance: IMATINIB MESYLATE
     Dosage: 400 MG, QD
     Route: 048
     Dates: start: 20151221, end: 201602
  3. GLEEVEC [Suspect]
     Active Substance: IMATINIB MESYLATE
     Dosage: 600 MG, QD
     Route: 048
  4. GLEEVEC [Suspect]
     Active Substance: IMATINIB MESYLATE
     Dosage: 400 MG, QD
     Route: 048
     Dates: start: 201209, end: 20140404
  5. GLEEVEC [Suspect]
     Active Substance: IMATINIB MESYLATE
     Dosage: 400 MG, QD
     Route: 048
     Dates: end: 20141202
  6. GLEEVEC [Suspect]
     Active Substance: IMATINIB MESYLATE
     Dosage: 200 MG, QD
     Route: 048
     Dates: start: 20160401
  7. GLEEVEC [Suspect]
     Active Substance: IMATINIB MESYLATE
     Dosage: 200 MG, BID
     Route: 048
  8. GLEEVEC [Suspect]
     Active Substance: IMATINIB MESYLATE
     Indication: GASTROINTESTINAL STROMAL TUMOUR
     Dosage: 400 MG, QD
     Route: 048
     Dates: start: 200804, end: 2010
  9. GLEEVEC [Suspect]
     Active Substance: IMATINIB MESYLATE
     Dosage: 300 MG, QD
     Route: 048
  10. OMEPRAZOLE. [Concomitant]
     Active Substance: OMEPRAZOLE
     Indication: GASTRIC PH DECREASED
     Dosage: UNK
     Route: 065
  11. GLEEVEC [Suspect]
     Active Substance: IMATINIB MESYLATE
     Dosage: 300 MG, QD
     Route: 048

REACTIONS (24)
  - Fistula [Recovering/Resolving]
  - Bladder disorder [Unknown]
  - Feeling abnormal [Unknown]
  - Haemoglobin decreased [Unknown]
  - Intestinal perforation [Recovering/Resolving]
  - Abdominal pain [Unknown]
  - Recurrent cancer [Unknown]
  - Metastasis [Unknown]
  - Red blood cell count decreased [Unknown]
  - Renal cancer [Unknown]
  - Renal disorder [Unknown]
  - Haematocrit decreased [Unknown]
  - Second primary malignancy [Unknown]
  - Gastric fistula [Unknown]
  - Sunburn [Unknown]
  - Fistula [Recovered/Resolved]
  - Inflammation [Recovering/Resolving]
  - Gastrointestinal stromal tumour [Unknown]
  - Malignant neoplasm progression [Unknown]
  - Blood iron decreased [Unknown]
  - Muscle spasms [Recovering/Resolving]
  - Metastases to liver [Unknown]
  - Skin burning sensation [Unknown]
  - Malaise [Unknown]

NARRATIVE: CASE EVENT DATE: 2013
